FAERS Safety Report 6974300-5 (Version None)
Quarter: 2010Q3

REPORT INFORMATION
  Report Type: 
  Country: None (occurrence: None)
  Receive Date: 20100909
  Receipt Date: 20100812
  Transmission Date: 20110219
  Serious: Yes (Hospitalization, Other)
  Sender: FDA-Public Use
  Company Number: PHFR2010IE02078

PATIENT
  Sex: Male

DRUGS (2)
  1. CLOZARIL [Suspect]
     Indication: SCHIZOPHRENIA
     Dosage: UNK
     Route: 048
     Dates: start: 20090225
  2. CLOZARIL [Suspect]
     Dosage: 3 G, UNK
     Dates: start: 20100804, end: 20100804

REACTIONS (3)
  - LOSS OF CONSCIOUSNESS [None]
  - MENTAL DISORDER [None]
  - OVERDOSE [None]
